FAERS Safety Report 5036672-0 (Version None)
Quarter: 2006Q2

REPORT INFORMATION
  Report Type: 
  Country: None (occurrence: None)
  Receive Date: 20060616
  Receipt Date: 20060505
  Transmission Date: 20061013
  Serious: No
  Sender: FDA-Public Use
  Company Number: 2006RL000164

PATIENT
  Sex: Female

DRUGS (9)
  1. OMACOR [Suspect]
     Indication: BLOOD CHOLESTEROL
     Dosage: SEE IMAGE
     Route: 048
     Dates: start: 20060301, end: 20060424
  2. OMACOR [Suspect]
     Indication: LIPOPROTEIN (A) INCREASED
     Dosage: SEE IMAGE
     Route: 048
     Dates: start: 20060301, end: 20060424
  3. OMACOR [Suspect]
     Indication: BLOOD CHOLESTEROL
     Dosage: SEE IMAGE
     Route: 048
     Dates: start: 20060425, end: 20060428
  4. OMACOR [Suspect]
     Indication: LIPOPROTEIN (A) INCREASED
     Dosage: SEE IMAGE
     Route: 048
     Dates: start: 20060425, end: 20060428
  5. OMACOR [Suspect]
     Indication: BLOOD CHOLESTEROL
     Dosage: SEE IMAGE
     Route: 048
     Dates: start: 20060429
  6. OMACOR [Suspect]
     Indication: LIPOPROTEIN (A) INCREASED
     Dosage: SEE IMAGE
     Route: 048
     Dates: start: 20060429
  7. WELCHOL [Suspect]
     Dosage: SEE IMAGE
  8. ZETIA [Suspect]
     Dates: end: 20060311
  9. TESTOSTERONE [Concomitant]

REACTIONS (4)
  - DIZZINESS [None]
  - HIGH DENSITY LIPOPROTEIN DECREASED [None]
  - LIPOPROTEIN (A) INCREASED [None]
  - TREATMENT NONCOMPLIANCE [None]
